FAERS Safety Report 10627669 (Version 1)
Quarter: 2014Q4

REPORT INFORMATION
  Report Type: Report from Study
  Country: AR (occurrence: AR)
  Receive Date: 20141205
  Receipt Date: 20141205
  Transmission Date: 20150529
  Serious: Yes (Other)
  Sender: FDA-Public Use
  Company Number: AR-BRISTOL-MYERS SQUIBB COMPANY-21662051

PATIENT
  Age: 43 Year
  Sex: Male

DRUGS (1)
  1. BARACLUDE [Suspect]
     Active Substance: ENTECAVIR
     Indication: HEPATITIS B
     Route: 048
     Dates: start: 2010

REACTIONS (1)
  - Splenomegaly [Not Recovered/Not Resolved]

NARRATIVE: CASE EVENT DATE: 201411
